FAERS Safety Report 7833427-6 (Version None)
Quarter: 2011Q4

REPORT INFORMATION
  Report Type: 
  Country: None (occurrence: None)
  Receive Date: 20111024
  Receipt Date: 20111013
  Transmission Date: 20120403
  Serious: Yes (Hospitalization, Other)
  Sender: FDA-Public Use
  Company Number: US-ELI_LILLY_AND_COMPANY-US201001006150

PATIENT
  Sex: Male

DRUGS (10)
  1. FORTEO [Suspect]
     Indication: OSTEOPOROSIS
     Dosage: 20 UG, QD
     Dates: start: 20091201
  2. FOSAMAX [Concomitant]
     Dosage: UNK
  3. FLUTICASONE PROPIONATE [Concomitant]
     Indication: HYPERSENSITIVITY
  4. LISINOPRIL [Concomitant]
     Indication: HYPERTENSION
     Dosage: 20 MG, UNK
  5. PREDNISONE [Concomitant]
     Dosage: 15 MG, QD
  6. PYRIDOSTIGMINE BROMIDE [Concomitant]
     Dosage: 60 MG, QID
  7. AZATHIOPRINE [Concomitant]
     Dosage: 100 MG, TID
  8. FORTEO [Suspect]
     Dosage: 20 UG, QD
  9. FORTEO [Suspect]
     Dosage: 20 UG, QD
  10. TIMOLOL MALEATE [Concomitant]
     Indication: OCULAR HYPERTENSION
     Dosage: 5 ML, QD

REACTIONS (19)
  - MYALGIA [None]
  - ARTHRALGIA [None]
  - COUGH [None]
  - MUSCLE SPASMS [None]
  - FATIGUE [None]
  - PROSTATOMEGALY [None]
  - ABDOMINAL DISTENSION [None]
  - VERTEBROPLASTY [None]
  - SENSATION OF PRESSURE [None]
  - MUSCULOSKELETAL CHEST PAIN [None]
  - GAIT DISTURBANCE [None]
  - THORACIC VERTEBRAL FRACTURE [None]
  - PERIPHERAL NERVE OPERATION [None]
  - NASOPHARYNGITIS [None]
  - FRACTURE [None]
  - PROSTATE CANCER [None]
  - CHOLECYSTECTOMY [None]
  - BACK PAIN [None]
  - GASTROINTESTINAL BACTERIAL INFECTION [None]
